FAERS Safety Report 18670380 (Version 1)
Quarter: 2020Q4

REPORT INFORMATION
  Report Type: Spontaneous
  Country: DE (occurrence: DE)
  Receive Date: 20201228
  Receipt Date: 20201228
  Transmission Date: 20210114
  Serious: Yes (Other)
  Sender: FDA-Public Use
  Company Number: DE-PFIZER INC-2020099569

PATIENT
  Age: 28 Year
  Sex: Female
  Weight: 53 kg

DRUGS (1)
  1. CYTOTEC [Suspect]
     Active Substance: MISOPROSTOL
     Indication: LABOUR INDUCTION
     Dosage: 1X MORNING, 50 UG AT 09:50 AM
     Route: 048
     Dates: start: 20130502, end: 20130502

REACTIONS (4)
  - Off label use [Unknown]
  - Perineal injury [Unknown]
  - Uterine tachysystole [Recovering/Resolving]
  - Vulvovaginal injury [Unknown]

NARRATIVE: CASE EVENT DATE: 20130502
